FAERS Safety Report 4713769-3 (Version None)
Quarter: 2005Q3

REPORT INFORMATION
  Report Type: 
  Country: None (occurrence: None)
  Receive Date: 20050713
  Receipt Date: 20050705
  Transmission Date: 20060218
  Serious: Yes (Life-Threatening, Other)
  Sender: FDA-Public Use
  Company Number: GB-MERCK-0507GBR00021

PATIENT
  Age: 66 Year
  Sex: Male
  Weight: 70 kg

DRUGS (7)
  1. ZETIA [Suspect]
     Indication: PERIPHERAL VASCULAR DISORDER
     Route: 048
     Dates: start: 20050504
  2. WARFARIN SODIUM [Suspect]
     Route: 065
     Dates: start: 20010828
  3. ASPIRIN [Concomitant]
     Route: 065
     Dates: start: 19990802
  4. LISINOPRIL [Concomitant]
     Route: 065
     Dates: start: 20000516
  5. DIGOXIN [Concomitant]
     Route: 065
     Dates: start: 20000523
  6. CARVEDILOL [Concomitant]
     Route: 065
     Dates: start: 20010313
  7. ATORVASTATIN CALCIUM [Concomitant]
     Route: 065
     Dates: start: 20010412

REACTIONS (2)
  - DRUG INTERACTION [None]
  - INTERNATIONAL NORMALISED RATIO INCREASED [None]
